FAERS Safety Report 11595258 (Version 3)
Quarter: 2015Q4

REPORT INFORMATION
  Report Type: Spontaneous
  Country: US (occurrence: US)
  Receive Date: 20151006
  Receipt Date: 20151028
  Transmission Date: 20160304
  Serious: No
  Sender: FDA-Public Use
  Company Number: US-AMGEN-USASP2015099134

PATIENT
  Sex: Female

DRUGS (3)
  1. HUMIRA [Concomitant]
     Active Substance: ADALIMUMAB
     Dosage: UNK
  2. ENBREL [Suspect]
     Active Substance: ETANERCEPT
     Indication: RHEUMATOID ARTHRITIS
     Dosage: UNK
     Route: 065
  3. ENBREL [Suspect]
     Active Substance: ETANERCEPT
     Indication: COMPLEX REGIONAL PAIN SYNDROME

REACTIONS (15)
  - Head discomfort [Unknown]
  - Tangentiality [Unknown]
  - Mobility decreased [Unknown]
  - Drug effect decreased [Unknown]
  - Memory impairment [Unknown]
  - Off label use [Unknown]
  - Anxiety [Unknown]
  - Device issue [Unknown]
  - Musculoskeletal stiffness [Unknown]
  - Needle issue [Unknown]
  - Injection site pain [Unknown]
  - Nervousness [Unknown]
  - Muscle spasms [Unknown]
  - Device malfunction [Unknown]
  - Infection [Unknown]

NARRATIVE: CASE EVENT DATE: 2015
